FAERS Safety Report 22355601 (Version 2)
Quarter: 2023Q2

REPORT INFORMATION
  Report Type: Spontaneous
  Country: US (occurrence: None)
  Receive Date: 20230523
  Receipt Date: 20230609
  Transmission Date: 20230721
  Serious: Yes (Death)
  Sender: FDA-Public Use
  Company Number: 2023A116032

PATIENT
  Age: 66 Year
  Sex: Male

DRUGS (1)
  1. OLAPARIB [Suspect]
     Active Substance: OLAPARIB
     Indication: Pancreatic neuroendocrine tumour metastatic
     Route: 048

REACTIONS (3)
  - Metastases to central nervous system [Fatal]
  - Acquired gene mutation [Fatal]
  - Drug resistance [Fatal]
